FAERS Safety Report 14292927 (Version 2)
Quarter: 2018Q1

REPORT INFORMATION
  Report Type: Spontaneous
  Country: US (occurrence: US)
  Receive Date: 20171215
  Receipt Date: 20180102
  Transmission Date: 20180509
  Serious: Yes (Other)
  Sender: FDA-Public Use
  Company Number: US-PFIZER INC-2017529951

PATIENT
  Age: 40 Year
  Sex: Female

DRUGS (2)
  1. PROGESTERONE. [Concomitant]
     Active Substance: PROGESTERONE
     Indication: ANTIANDROGEN THERAPY
     Dosage: UNK
  2. SPIRONOLACTONE. [Suspect]
     Active Substance: SPIRONOLACTONE
     Indication: ANTIANDROGEN THERAPY
     Dosage: 100 MG, DAILY

REACTIONS (2)
  - Bulbospinal muscular atrophy congenital [Unknown]
  - Product use in unapproved indication [Unknown]
